FAERS Safety Report 7592928-9 (Version None)
Quarter: 2011Q3

REPORT INFORMATION
  Report Type: 
  Country: None (occurrence: None)
  Receive Date: 20110706
  Receipt Date: 20110609
  Transmission Date: 20111222
  Serious: Yes (Other)
  Sender: FDA-Public Use
  Company Number: US-SANOFI-AVENTIS-2011SA023956

PATIENT
  Sex: Female

DRUGS (2)
  1. LANTUS [Suspect]
  2. SOLOSTAR [Suspect]
     Indication: DEVICE THERAPY

REACTIONS (1)
  - DEVICE MALFUNCTION [None]
